FAERS Safety Report 16754038 (Version 1)
Quarter: 2019Q3

REPORT INFORMATION
  Report Type: Spontaneous
  Country: CN (occurrence: CN)
  Receive Date: 20190829
  Receipt Date: 20190829
  Transmission Date: 20191005
  Serious: Yes (Other)
  Sender: FDA-Public Use
  Company Number: CN-PFIZER INC-2019365878

PATIENT
  Age: 81 Year
  Sex: Male
  Weight: 62 kg

DRUGS (1)
  1. VFEND [Suspect]
     Active Substance: VORICONAZOLE
     Indication: INFECTION
     Dosage: 200 MG, 2X/DAY
     Route: 041
     Dates: start: 20190815, end: 20190817

REACTIONS (3)
  - Hallucination [Recovering/Resolving]
  - Delirium [Recovering/Resolving]
  - Dyslexia [Recovering/Resolving]

NARRATIVE: CASE EVENT DATE: 20190817
